FAERS Safety Report 14239714 (Version 1)
Quarter: 2017Q4

REPORT INFORMATION
  Report Type: Spontaneous
  Country: US (occurrence: US)
  Receive Date: 20171128
  Receipt Date: 20171128
  Transmission Date: 20180321
  Serious: Yes (Other)
  Sender: FDA-Public Use
  Company Number: None

PATIENT
  Age: 87 Year
  Sex: Male
  Weight: 66.6 kg

DRUGS (14)
  1. FLOVENT HFA [Concomitant]
     Active Substance: FLUTICASONE PROPIONATE
  2. FERROUSUL [Concomitant]
  3. ONDANSETRON [Concomitant]
     Active Substance: ONDANSETRON
  4. ROSUVASTATIN. [Concomitant]
     Active Substance: ROSUVASTATIN
  5. TEMOZOLOMIDE. [Suspect]
     Active Substance: TEMOZOLOMIDE
     Indication: BRAIN NEOPLASM MALIGNANT
     Route: 048
     Dates: start: 20171025, end: 20171127
  6. VITAMIN D3 [Concomitant]
     Active Substance: CHOLECALCIFEROL
  7. NITROSTAT [Concomitant]
     Active Substance: NITROGLYCERIN
  8. VANCOMYCIN [Concomitant]
     Active Substance: VANCOMYCIN
  9. ACETAMINOPHEN. [Concomitant]
     Active Substance: ACETAMINOPHEN
  10. ATENOLOL. [Concomitant]
     Active Substance: ATENOLOL
  11. TAMSULOSIN [Concomitant]
     Active Substance: TAMSULOSIN
  12. FAMOTIDINE. [Concomitant]
     Active Substance: FAMOTIDINE
  13. LISINOPRIL. [Concomitant]
     Active Substance: LISINOPRIL
  14. PROCHLORPERAZINE. [Concomitant]
     Active Substance: PROCHLORPERAZINE

REACTIONS (1)
  - Disease progression [None]
